FAERS Safety Report 7025535-7 (Version None)
Quarter: 2010Q4

REPORT INFORMATION
  Report Type: 
  Country: None (occurrence: None)
  Receive Date: 20101003
  Receipt Date: 20100922
  Transmission Date: 20110411
  Serious: Yes (Other)
  Sender: FDA-Public Use
  Company Number: PHHY2010JP63697

PATIENT
  Sex: Female

DRUGS (2)
  1. NEORAL [Suspect]
     Indication: DERMATITIS ATOPIC
     Dosage: 100 MG/DAY
     Route: 048
     Dates: start: 20100801
  2. NEORAL [Suspect]
     Dosage: 100 MG/DAY
     Dates: start: 20100901

REACTIONS (4)
  - DIZZINESS [None]
  - FACE INJURY [None]
  - FALL [None]
  - LOSS OF CONSCIOUSNESS [None]
